FAERS Safety Report 20953386 (Version 2)
Quarter: 2022Q2

REPORT INFORMATION
  Report Type: Report from Study
  Country: US (occurrence: US)
  Receive Date: 20220613
  Receipt Date: 20220622
  Transmission Date: 20220720
  Serious: No
  Sender: FDA-Public Use
  Company Number: US-NOVARTISTESTPH-NVSC2022US134702

PATIENT
  Sex: Female

DRUGS (1)
  1. ILARIS [Suspect]
     Active Substance: CANAKINUMAB
     Indication: Cryopyrin associated periodic syndrome
     Dosage: 42 MG, EVERY 8 WEEKS
     Route: 058

REACTIONS (4)
  - Pyrexia [Unknown]
  - Oropharyngeal pain [Unknown]
  - COVID-19 [Unknown]
  - Illness [Unknown]
